FAERS Safety Report 24539299 (Version 1)
Quarter: 2024Q4

REPORT INFORMATION
  Report Type: Spontaneous
  Country: CN (occurrence: CN)
  Receive Date: 20241023
  Receipt Date: 20241023
  Transmission Date: 20250114
  Serious: Yes (Other)
  Sender: RANBAXY
  Company Number: CN-SUN PHARMACEUTICAL INDUSTRIES LTD-2024R1-474580

PATIENT
  Age: 40 Year
  Sex: Female

DRUGS (2)
  1. METHIMAZOLE [Suspect]
     Active Substance: METHIMAZOLE
     Indication: Hyperthyroidism
     Dosage: 20 MILLIGRAM, QD
     Route: 065
  2. METHIMAZOLE [Suspect]
     Active Substance: METHIMAZOLE
     Dosage: 5 MILLIGRAM, QD
     Route: 065

REACTIONS (1)
  - Major depression [Recovered/Resolved]
